FAERS Safety Report 4611812-3 (Version None)
Quarter: 2005Q1

REPORT INFORMATION
  Report Type: 
  Country: None (occurrence: None)
  Receive Date: 20050317
  Receipt Date: 20050307
  Transmission Date: 20050727
  Serious: Yes (Other)
  Sender: FDA-Public Use
  Company Number: LT-ABBOTT-05P-234-0293190-00

PATIENT
  Sex: Female

DRUGS (1)
  1. KLACID SR [Suspect]
     Indication: PNEUMONIA
     Route: 048
     Dates: start: 20050101

REACTIONS (4)
  - ANGIONEUROTIC OEDEMA [None]
  - DYSPNOEA [None]
  - STOMATITIS [None]
  - TONGUE OEDEMA [None]
